FAERS Safety Report 4745556-4 (Version None)
Quarter: 2005Q3

REPORT INFORMATION
  Report Type: 
  Country: None (occurrence: None)
  Receive Date: 20050812
  Receipt Date: 20050805
  Transmission Date: 20060218
  Serious: Yes (Hospitalization, Other)
  Sender: FDA-Public Use
  Company Number: 2005-02654

PATIENT
  Age: 1 Day
  Sex: Male
  Weight: 1.7 kg

DRUGS (4)
  1. BACLOFEN [Suspect]
  2. VICODIN [Suspect]
  3. ENBREL [Suspect]
  4. PREDNISONE [Concomitant]

REACTIONS (6)
  - CAESAREAN SECTION [None]
  - CONVULSION NEONATAL [None]
  - DRUG EXPOSURE DURING PREGNANCY [None]
  - FOETAL GROWTH RETARDATION [None]
  - NEONATAL RESPIRATORY DISTRESS SYNDROME [None]
  - PREMATURE BABY [None]
